FAERS Safety Report 25756917 (Version 1)
Quarter: 2025Q3

REPORT INFORMATION
  Report Type: Spontaneous
  Country: AU (occurrence: AU)
  Receive Date: 20250903
  Receipt Date: 20250903
  Transmission Date: 20251021
  Serious: Yes (Hospitalization, Other)
  Sender: ASTELLAS
  Company Number: AU-ASTELLAS-2025-AER-048060

PATIENT
  Age: 33 Year
  Sex: Female

DRUGS (12)
  1. TACROLIMUS [Suspect]
     Active Substance: TACROLIMUS
     Indication: Lung transplant
     Dosage: TARGET TROUGH LEVEL 6^-8 MICROG/L
     Route: 065
  2. TACROLIMUS [Suspect]
     Active Substance: TACROLIMUS
     Route: 065
  3. TACROLIMUS [Suspect]
     Active Substance: TACROLIMUS
     Dosage: RETURNED TO THEIR ORIGINAL PRESCRIBED REGIMEN (BY DAY 98)
     Route: 065
  4. MYCOPHENOLATE MOFETIL [Concomitant]
     Active Substance: MYCOPHENOLATE MOFETIL
     Indication: Lung transplant
     Route: 065
  5. MYCOPHENOLATE MOFETIL [Concomitant]
     Active Substance: MYCOPHENOLATE MOFETIL
     Dosage: REDUCED
     Route: 065
  6. MYCOPHENOLATE MOFETIL [Concomitant]
     Active Substance: MYCOPHENOLATE MOFETIL
     Dosage: RETURNED TO THEIR ORIGINAL PRESCRIBED REGIMEN (BY DAY 98
     Route: 065
  7. PREDNISOLONE [Concomitant]
     Active Substance: PREDNISOLONE
     Indication: Lung transplant
     Route: 065
  8. PREDNISOLONE [Concomitant]
     Active Substance: PREDNISOLONE
     Dosage: ON DAY 15
     Route: 065
  9. PREDNISOLONE [Concomitant]
     Active Substance: PREDNISOLONE
     Dosage: ON DAY 18
     Route: 065
  10. PREDNISOLONE [Concomitant]
     Active Substance: PREDNISOLONE
     Route: 065
  11. PREDNISOLONE [Concomitant]
     Active Substance: PREDNISOLONE
     Route: 065
  12. PREDNISOLONE [Concomitant]
     Active Substance: PREDNISOLONE
     Dosage: ON DAY 91
     Route: 065

REACTIONS (11)
  - Dengue viraemia [Recovering/Resolving]
  - Visual field defect [Unknown]
  - Visual acuity reduced [Recovering/Resolving]
  - Cystoid macular oedema [Recovering/Resolving]
  - Pseudopapilloedema [Unknown]
  - Retinal haemorrhage [Unknown]
  - Ocular hypertension [Unknown]
  - Retinal degeneration [Unknown]
  - Retinal vasculitis [Unknown]
  - Infection-induced seroconversion [Unknown]
  - Cytomegalovirus colitis [Recovered/Resolved]
